FAERS Safety Report 7466884-8 (Version None)
Quarter: 2011Q2

REPORT INFORMATION
  Report Type: 
  Country: None (occurrence: None)
  Receive Date: 20110509
  Receipt Date: 20100927
  Transmission Date: 20111010
  Serious: No
  Sender: FDA-Public Use
  Company Number: US-ALEXION-A201001231

PATIENT
  Sex: Female

DRUGS (6)
  1. SOLIRIS [Suspect]
     Dosage: 900 MG, Q2W
     Route: 042
     Dates: start: 20081008
  2. FOLIC ACID [Concomitant]
     Dosage: 5 MG, QD
     Route: 048
  3. INFLUENZA VACCINE [Suspect]
     Indication: IMMUNISATION
     Dosage: UNK
     Route: 030
     Dates: start: 20100923, end: 20100923
  4. LAMICTAL [Concomitant]
     Dosage: UNK, BID
     Route: 048
  5. SOLIRIS [Suspect]
     Indication: PAROXYSMAL NOCTURNAL HAEMOGLOBINURIA
     Dosage: 600 MG, QW
     Route: 042
     Dates: start: 20080910, end: 20080101
  6. FOLIC ACID [Concomitant]
     Dosage: 1 MG, QD

REACTIONS (2)
  - CHILLS [None]
  - PYREXIA [None]
